FAERS Safety Report 18494410 (Version 1)
Quarter: 2020Q4

REPORT INFORMATION
  Report Type: Spontaneous
  Country: US (occurrence: US)
  Receive Date: 20201112
  Receipt Date: 20201112
  Transmission Date: 20210114
  Serious: No
  Sender: FDA-Public Use
  Company Number: US-009507513-2011USA005268

PATIENT
  Sex: Female
  Weight: 85.71 kg

DRUGS (2)
  1. NEXPLANON [Suspect]
     Active Substance: ETONOGESTREL
     Dosage: 1 ROD EVERY 3 YEARS IN ARM (UNSPECIFIED)
     Route: 059
     Dates: start: 20200715, end: 20201104
  2. NEXPLANON [Suspect]
     Active Substance: ETONOGESTREL
     Dosage: 1 IMPLANT
     Route: 059
     Dates: start: 20201104

REACTIONS (2)
  - Device breakage [Recovered/Resolved]
  - No adverse event [Unknown]
